FAERS Safety Report 9186990 (Version 2)
Quarter: 2015Q4

REPORT INFORMATION
  Report Type: Spontaneous
  Country: FR (occurrence: FR)
  Receive Date: 20130325
  Receipt Date: 20151223
  Transmission Date: 20160305
  Serious: Yes (Hospitalization)
  Sender: FDA-Public Use
  Company Number: FR-PFIZER INC-2013090026

PATIENT
  Age: 80 Year
  Sex: Male

DRUGS (8)
  1. RIMACTAN [Suspect]
     Active Substance: RIFAMPIN
     Dosage: 2 DF, DAILY
     Route: 048
     Dates: start: 20121112, end: 20121205
  2. SELOKEN [Concomitant]
     Active Substance: METOPROLOL
  3. HEXAQUINE [Concomitant]
     Active Substance: NIAOULI OIL\QUININE BENZOATE\THIAMINE HYDROCHLORIDE
  4. NAFTIDROFURYL [Concomitant]
     Active Substance: NAFRONYL
  5. ZYVOXID [Suspect]
     Active Substance: LINEZOLID
     Dosage: 1200 MG, DAILY
     Route: 048
     Dates: start: 20121119, end: 20121205
  6. ALLOPURINOL. [Concomitant]
     Active Substance: ALLOPURINOL
  7. GLUCOPHAGE [Concomitant]
     Active Substance: METFORMIN HYDROCHLORIDE
  8. LANTUS [Concomitant]
     Active Substance: INSULIN GLARGINE

REACTIONS (7)
  - Rash papular [Recovered/Resolved]
  - Tongue oedema [Recovered/Resolved]
  - Drug reaction with eosinophilia and systemic symptoms [Recovered/Resolved]
  - Rash erythematous [Recovered/Resolved]
  - Eosinophilia [Recovered/Resolved]
  - Rash pruritic [Recovered/Resolved]
  - Face oedema [Recovered/Resolved]

NARRATIVE: CASE EVENT DATE: 20121202
